FAERS Safety Report 10917680 (Version 1)
Quarter: 2015Q1

REPORT INFORMATION
  Report Type: Spontaneous
  Country: US (occurrence: None)
  Receive Date: 20150312
  Receipt Date: 20150312
  Transmission Date: 20150721
  Serious: Yes (Hospitalization)
  Sender: FDA-Public Use
  Company Number: None

PATIENT
  Age: 54 Year
  Sex: Female
  Weight: 58.97 kg

DRUGS (9)
  1. ONE-A-DAY MULTI-VIT [Concomitant]
  2. TRAMADOL-ACETAMINOPHEN [Suspect]
     Active Substance: ACETAMINOPHEN\TRAMADOL
     Indication: MUSCULOSKELETAL PAIN
     Dosage: STRENGTH: 37.5-325 MG, QUANTITY: 2 PILLS, FREQUENCY: EVERY 6 HRS FOR PAIN, BY MOUTH AFTER EATING?
     Route: 048
     Dates: start: 20150221, end: 20150221
  3. FISH OIL [Concomitant]
     Active Substance: FISH OIL
  4. JOINT SOOTHER [Concomitant]
  5. COENZYME Q10 [Concomitant]
     Active Substance: UBIDECARENONE
  6. B-100 COMPLEX [Concomitant]
     Active Substance: DEXPANTHENOL\NIACINAMIDE\PYRIDOXINE HYDROCHLORIDE\RIBOFLAVIN 5^-PHOSPHATE SODIUM\THIAMINE HYDROCHLORIDE
  7. OMEGA-3 ACIDS [Concomitant]
     Active Substance: OMEGA-3 FATTY ACIDS
  8. TRAMADOL-ACETAMINOPHEN [Suspect]
     Active Substance: ACETAMINOPHEN\TRAMADOL
     Indication: ROTATOR CUFF SYNDROME
     Dosage: STRENGTH: 37.5-325 MG, QUANTITY: 2 PILLS, FREQUENCY: EVERY 6 HRS FOR PAIN, BY MOUTH AFTER EATING?
     Route: 048
     Dates: start: 20150221, end: 20150221
  9. ESTER-C [Concomitant]
     Active Substance: CALCIUM\VITAMINS

REACTIONS (10)
  - Dizziness [None]
  - Crying [None]
  - Pallor [None]
  - Hypokinesia [None]
  - Vomiting [None]
  - Disturbance in attention [None]
  - Fear [None]
  - Nervous system disorder [None]
  - Emotional disorder [None]
  - Gait disturbance [None]

NARRATIVE: CASE EVENT DATE: 20150221
